FAERS Safety Report 10885228 (Version 1)
Quarter: 2015Q1

REPORT INFORMATION
  Report Type: Spontaneous
  Country: US (occurrence: US)
  Receive Date: 20150304
  Receipt Date: 20150304
  Transmission Date: 20150721
  Serious: No
  Sender: FDA-Public Use
  Company Number: US-TEVA-544437USA

PATIENT
  Sex: Male

DRUGS (9)
  1. FENTORA [Suspect]
     Active Substance: FENTANYL CITRATE
     Indication: NECK PAIN
  2. ACTIQ [Suspect]
     Active Substance: FENTANYL CITRATE
     Indication: NECK PAIN
     Dosage: 7200 MICROGRAM DAILY;
     Dates: end: 2014
  3. ACTIQ [Suspect]
     Active Substance: FENTANYL CITRATE
     Indication: BACK PAIN
  4. ACTIQ [Suspect]
     Active Substance: FENTANYL CITRATE
     Indication: BREAKTHROUGH PAIN
  5. FENTORA [Suspect]
     Active Substance: FENTANYL CITRATE
     Indication: BACK PAIN
  6. SUBSYS [Suspect]
     Active Substance: FENTANYL
     Indication: NECK PAIN
     Route: 060
     Dates: start: 2014
  7. SUBSYS [Suspect]
     Active Substance: FENTANYL
     Indication: BREAKTHROUGH PAIN
  8. FENTORA [Suspect]
     Active Substance: FENTANYL CITRATE
     Indication: BREAKTHROUGH PAIN
  9. SUBSYS [Suspect]
     Active Substance: FENTANYL
     Indication: BACK PAIN

REACTIONS (4)
  - Tooth erosion [Not Recovered/Not Resolved]
  - Gingival recession [Not Recovered/Not Resolved]
  - Drug administration error [Unknown]
  - Tooth fracture [Not Recovered/Not Resolved]
